FAERS Safety Report 6197386-7 (Version None)
Quarter: 2009Q2

REPORT INFORMATION
  Report Type: 
  Country: None (occurrence: None)
  Receive Date: 20090521
  Receipt Date: 20090513
  Transmission Date: 20091009
  Serious: Yes (Other)
  Sender: FDA-Public Use
  Company Number: PHHY2009JP18704

PATIENT

DRUGS (1)
  1. DIOVAN HCT [Suspect]
     Dosage: 1 DF, QD
     Route: 048

REACTIONS (2)
  - MELAENA [None]
  - POLYURIA [None]
